FAERS Safety Report 9649466 (Version 1)
Quarter: 2013Q4

REPORT INFORMATION
  Report Type: Spontaneous
  Country: DE (occurrence: None)
  Receive Date: 20131010
  Receipt Date: 20131010
  Transmission Date: 20140711
  Serious: Yes (Other)
  Sender: FDA-Public Use
  Company Number: E2B_00001156

PATIENT
  Age: 46 Year
  Sex: Male
  Weight: 85 kg

DRUGS (8)
  1. LEVETIRACETAM (LEVETIRACETAM) [Suspect]
     Indication: PROPHYLAXIS
     Dates: start: 20130605, end: 20130619
  2. MEROPENEM [Concomitant]
  3. RANITIDINE [Concomitant]
  4. DIMETINDENE MALEATE [Concomitant]
  5. HYDROCHLOROTHIAZIDE [Concomitant]
  6. METOPROLOL [Concomitant]
  7. FENTANYL [Concomitant]
  8. MIDAZOLAM [Concomitant]

REACTIONS (2)
  - Rash [None]
  - Neutropenia [None]
